FAERS Safety Report 13808634 (Version 1)
Quarter: 2017Q3

REPORT INFORMATION
  Report Type: Spontaneous
  Country: US (occurrence: US)
  Receive Date: 20170728
  Receipt Date: 20170728
  Transmission Date: 20171127
  Serious: Yes (Other)
  Sender: FDA-Public Use
  Company Number: PHHY2017US109818

PATIENT
  Age: 66 Year
  Sex: Male

DRUGS (1)
  1. ARGATROBAN. [Suspect]
     Active Substance: ARGATROBAN
     Indication: HEPARIN-INDUCED THROMBOCYTOPENIA
     Route: 065

REACTIONS (3)
  - Deep vein thrombosis [Recovered/Resolved]
  - Oedema peripheral [Unknown]
  - Therapy partial responder [Unknown]
